FAERS Safety Report 6577976-X (Version None)
Quarter: 2010Q1

REPORT INFORMATION
  Report Type: 
  Country: None (occurrence: None)
  Receive Date: 20100211
  Receipt Date: 20100204
  Transmission Date: 20100710
  Serious: Yes (Other)
  Sender: FDA-Public Use
  Company Number: US-TEVA-208060USA

PATIENT
  Sex: Female

DRUGS (2)
  1. AMPHETAMINES [Suspect]
     Indication: ATTENTION DEFICIT/HYPERACTIVITY DISORDER
     Route: 048
     Dates: end: 20090904
  2. AMITRIPTYLINE HYDROCHLORIDE [Concomitant]

REACTIONS (18)
  - AGITATION [None]
  - AMNESIA [None]
  - CONFUSIONAL STATE [None]
  - DISTURBANCE IN ATTENTION [None]
  - DRY MOUTH [None]
  - DYSPNOEA [None]
  - FATIGUE [None]
  - FEELING ABNORMAL [None]
  - IMPAIRED DRIVING ABILITY [None]
  - INSOMNIA [None]
  - MEMORY IMPAIRMENT [None]
  - MENTAL DISORDER [None]
  - MENTAL IMPAIRMENT [None]
  - MENTAL STATUS CHANGES [None]
  - MOOD SWINGS [None]
  - SUICIDE ATTEMPT [None]
  - TREMOR [None]
  - VISION BLURRED [None]
